FAERS Safety Report 24106857 (Version 2)
Quarter: 2024Q3

REPORT INFORMATION
  Report Type: Spontaneous
  Country: US (occurrence: US)
  Receive Date: 20240717
  Receipt Date: 20240731
  Transmission Date: 20241017
  Serious: No
  Sender: JOHNSON AND JOHNSON
  Company Number: US-JNJFOC-20240672505

PATIENT
  Sex: Female

DRUGS (1)
  1. ZYRTEC [Suspect]
     Active Substance: CETIRIZINE HYDROCHLORIDE
     Indication: Product used for unknown indication
     Dosage: 1/2 OF A 10MG TABLET
     Route: 065
     Dates: start: 20231222

REACTIONS (6)
  - Dyspepsia [Unknown]
  - Abdominal distension [Unknown]
  - Eructation [Unknown]
  - Malaise [Unknown]
  - Incorrect dose administered [Unknown]
  - Product odour abnormal [Unknown]

NARRATIVE: CASE EVENT DATE: 20231201
